FAERS Safety Report 4619085-2 (Version None)
Quarter: 2005Q2

REPORT INFORMATION
  Report Type: 
  Country: None (occurrence: None)
  Receive Date: 20050321
  Receipt Date: 20041211
  Transmission Date: 20051028
  Serious: Yes (Hospitalization)
  Sender: FDA-Public Use
  Company Number: 2004-12-0732

PATIENT
  Age: 35 Year
  Sex: Male

DRUGS (1)
  1. PEG-INTRON [Suspect]
     Dosage: SUBCUTANEOUS
     Route: 058
     Dates: start: 20041210

REACTIONS (6)
  - DEPRESSION [None]
  - HEADACHE [None]
  - NAUSEA [None]
  - PYREXIA [None]
  - UNDERDOSE [None]
  - VOMITING [None]
